FAERS Safety Report 20070929 (Version 2)
Quarter: 2022Q3

REPORT INFORMATION
  Report Type: Spontaneous
  Country: US (occurrence: US)
  Receive Date: 20211115
  Receipt Date: 20220728
  Transmission Date: 20221027
  Serious: No
  Sender: FDA-Public Use
  Company Number: US-IGSA-BIG0016572

PATIENT
  Age: 6 Year
  Sex: Female

DRUGS (1)
  1. HUMAN IMMUNOGLOBULIN G [Suspect]
     Active Substance: HUMAN IMMUNOGLOBULIN G
     Indication: Mucocutaneous haemorrhage
     Dosage: 47.5 GRAM, TOTAL
     Route: 042

REACTIONS (3)
  - Dermatitis psoriasiform [Recovered/Resolved]
  - Skin plaque [Recovered/Resolved]
  - Papule [Recovered/Resolved]
